FAERS Safety Report 10430968 (Version 2)
Quarter: 2014Q4

REPORT INFORMATION
  Report Type: Spontaneous
  Country: JP (occurrence: JP)
  Receive Date: 20140904
  Receipt Date: 20141016
  Transmission Date: 20150528
  Serious: Yes (Hospitalization, Other)
  Sender: FDA-Public Use
  Company Number: PHHY2012JP135447

PATIENT
  Age: 58 Year
  Sex: Male

DRUGS (3)
  1. TASIGNA [Suspect]
     Active Substance: NILOTINIB
     Indication: CHRONIC MYELOID LEUKAEMIA
     Dosage: 800 MG, QD
     Route: 048
     Dates: start: 20101209
  2. TASIGNA [Suspect]
     Active Substance: NILOTINIB
     Dosage: 400 MG, QD
     Route: 048
  3. TASIGNA [Suspect]
     Active Substance: NILOTINIB
     Dosage: 200 MG, QD
     Route: 048
     Dates: start: 20110316, end: 20110413

REACTIONS (3)
  - Muscle spasms [Recovered/Resolved]
  - Thrombocytopenia [Recovered/Resolved]
  - Hypertensive encephalopathy [Recovered/Resolved]

NARRATIVE: CASE EVENT DATE: 201101
